FAERS Safety Report 17186811 (Version 1)
Quarter: 2019Q4

REPORT INFORMATION
  Report Type: Spontaneous
  Country: JP (occurrence: JP)
  Receive Date: 20191220
  Receipt Date: 20191220
  Transmission Date: 20200122
  Serious: Yes (Hospitalization, Disabling, Other)
  Sender: FDA-Public Use
  Company Number: JP-ASTRAZENECA-2019SE90645

PATIENT
  Age: 79 Year
  Sex: Female

DRUGS (17)
  1. TAGRISSO [Suspect]
     Active Substance: OSIMERTINIB
     Indication: NON-SMALL CELL LUNG CANCER
     Route: 048
     Dates: start: 20190802, end: 20190927
  2. AZILVA [Concomitant]
     Active Substance: AZILSARTAN KAMEDOXOMIL
  3. NICORANDIL [Concomitant]
     Active Substance: NICORANDIL
  4. TAGRISSO [Suspect]
     Active Substance: OSIMERTINIB
     Indication: NON-SMALL CELL LUNG CANCER
     Route: 048
     Dates: start: 20190603
  5. TAGRISSO [Suspect]
     Active Substance: OSIMERTINIB
     Indication: NON-SMALL CELL LUNG CANCER
     Route: 048
     Dates: start: 20190704, end: 20190718
  6. LIVALO [Concomitant]
     Active Substance: PITAVASTATIN CALCIUM
  7. EPERISONE HYDROCHLORIDE [Concomitant]
     Active Substance: EPERISONE HYDROCHLORIDE
  8. IRESSA [Suspect]
     Active Substance: GEFITINIB
     Indication: LUNG ADENOCARCINOMA
     Route: 048
     Dates: start: 20180319, end: 20180710
  9. BISOPROLOL [Concomitant]
     Active Substance: BISOPROLOL
  10. FUROSEMIDE. [Concomitant]
     Active Substance: FUROSEMIDE
  11. LYRICA [Concomitant]
     Active Substance: PREGABALIN
  12. MINOCYCLINE HYDROCHLORIDE. [Concomitant]
     Active Substance: MINOCYCLINE HYDROCHLORIDE
  13. TEPRENONE [Concomitant]
     Active Substance: TEPRENONE
  14. NIFEDIPINE. [Concomitant]
     Active Substance: NIFEDIPINE
  15. EQUA [Concomitant]
     Active Substance: VILDAGLIPTIN
  16. ZETIA [Concomitant]
     Active Substance: EZETIMIBE
  17. BAYASPIRIN [Concomitant]
     Active Substance: ASPIRIN

REACTIONS (13)
  - Metastases to lung [Unknown]
  - Decreased appetite [Unknown]
  - Paronychia [Unknown]
  - Skin necrosis [Recovering/Resolving]
  - Renal impairment [Unknown]
  - Cellulitis [Unknown]
  - Thrombocytopenia [Recovered/Resolved]
  - Electrocardiogram QT prolonged [Unknown]
  - Malignant neoplasm progression [Unknown]
  - Stomatitis [Unknown]
  - Metastases to lymph nodes [Unknown]
  - Non-small cell lung cancer recurrent [Unknown]
  - Hyperkalaemia [Unknown]

NARRATIVE: CASE EVENT DATE: 20190319
